FAERS Safety Report 12961091 (Version 1)
Quarter: 2016Q4

REPORT INFORMATION
  Report Type: Spontaneous
  Country: ES (occurrence: ES)
  Receive Date: 20161121
  Receipt Date: 20161121
  Transmission Date: 20170207
  Serious: Yes (Death)
  Sender: FDA-Public Use
  Company Number: ES-PFIZER INC-2016530598

PATIENT
  Age: 84 Year
  Sex: Female

DRUGS (3)
  1. QUETIAPINE FUMARATE. [Suspect]
     Active Substance: QUETIAPINE FUMARATE
     Indication: DEPRESSION
     Dosage: 25 MG, DAILY
  2. PAROXETINE. [Suspect]
     Active Substance: PAROXETINE
     Indication: DEPRESSION
     Dosage: 30 MG, DAILY
  3. FENTANYL. [Suspect]
     Active Substance: FENTANYL
     Indication: OSTEOARTHRITIS
     Dosage: 25 UG (EVERY THREE DAYS)

REACTIONS (2)
  - Cardiac arrest [Fatal]
  - Serotonin syndrome [Fatal]
